FAERS Safety Report 9844887 (Version 4)
Quarter: 2014Q2

REPORT INFORMATION
  Report Type: Report from Study
  Country: CO (occurrence: CO)
  Receive Date: 20140127
  Receipt Date: 20140407
  Transmission Date: 20141212
  Serious: Yes (Hospitalization)
  Sender: FDA-Public Use
  Company Number: CO-SA-2014SA007163

PATIENT
  Age: 92 Year
  Sex: Male

DRUGS (5)
  1. LANTUS [Suspect]
     Indication: DIABETES MELLITUS
     Dosage: DOSE:30 UNIT(S)
     Route: 058
     Dates: start: 201308
  2. APIDRA [Suspect]
     Indication: DIABETES MELLITUS
     Dosage: DOSE:5 UNIT(S)
     Route: 058
     Dates: start: 201311
  3. LOVASTATIN [Concomitant]
     Indication: DYSLIPIDAEMIA
     Route: 048
  4. LOSARTAN [Concomitant]
     Indication: HYPERTENSION
     Route: 048
  5. ACETYLSALICYLIC ACID [Concomitant]
     Route: 048

REACTIONS (2)
  - Bile duct obstruction [Recovering/Resolving]
  - Blood glucose increased [Unknown]
